FAERS Safety Report 24691968 (Version 1)
Quarter: 2024Q4

REPORT INFORMATION
  Report Type: Spontaneous
  Country: US (occurrence: None)
  Receive Date: 20241203
  Receipt Date: 20241203
  Transmission Date: 20250114
  Serious: Yes (Hospitalization)
  Sender: Public
  Company Number: None

PATIENT
  Age: 33 Year
  Sex: Male

DRUGS (6)
  1. VIGABATRIN [Suspect]
     Active Substance: VIGABATRIN
     Indication: Focal dyscognitive seizures
     Dosage: FREQ: MIX 1 PACKET WITH 10 ML OF WATER AND TAKE 10 ML BY MOUTH TWICE DIALY
  2. DDAVP [Concomitant]
     Active Substance: DESMOPRESSIN ACETATE
  3. FINTEPLA [Concomitant]
     Active Substance: FENFLURAMINE
  4. MELATONIN [Concomitant]
     Active Substance: MELATONIN
  5. PYRIDOXINE [Concomitant]
     Active Substance: PYRIDOXINE
  6. VITAMIN D [Concomitant]
     Active Substance: VITAMIN D NOS

REACTIONS (1)
  - Hospitalisation [None]

NARRATIVE: CASE EVENT DATE: 20241101
